FAERS Safety Report 16888928 (Version 1)
Quarter: 2019Q4

REPORT INFORMATION
  Report Type: Spontaneous
  Country: US (occurrence: US)
  Receive Date: 20191007
  Receipt Date: 20191007
  Transmission Date: 20200122
  Serious: No
  Sender: FDA-Public Use
  Company Number: US-GLAXOSMITHKLINE-US2019AMR176799

PATIENT
  Sex: Female

DRUGS (2)
  1. IRON SUPPLEMENT [Suspect]
     Active Substance: IRON
     Indication: PRODUCT USED FOR UNKNOWN INDICATION
     Dosage: UNK
     Route: 065
  2. NUCALA [Suspect]
     Active Substance: MEPOLIZUMAB
     Indication: PRODUCT USED FOR UNKNOWN INDICATION
     Dosage: 4 WEEKS, CYC
     Route: 065

REACTIONS (3)
  - Muscle spasms [Unknown]
  - Fatigue [Unknown]
  - Menorrhagia [Unknown]
